FAERS Safety Report 6205953-7 (Version None)
Quarter: 2009Q2

REPORT INFORMATION
  Report Type: 
  Country: None (occurrence: None)
  Receive Date: 20090522
  Receipt Date: 20090514
  Transmission Date: 20091009
  Serious: No
  Sender: FDA-Public Use
  Company Number: PI-04035

PATIENT
  Age: 90 Year
  Sex: Female

DRUGS (1)
  1. CHLORAPREP [Suspect]
     Indication: PREOPERATIVE CARE
     Dosage: 10.5 ML, ONCE, TOPICAL
     Route: 061
     Dates: start: 20090322

REACTIONS (1)
  - THERMAL BURN [None]
